FAERS Safety Report 13569980 (Version 1)
Quarter: 2017Q2

REPORT INFORMATION
  Report Type: Report from Study
  Country: US (occurrence: US)
  Receive Date: 20170522
  Receipt Date: 20170522
  Transmission Date: 20170830
  Serious: Yes (Hospitalization)
  Sender: FDA-Public Use
  Company Number: US-ACTELION-A-NJ2016-132393

PATIENT
  Age: 72 Year
  Sex: Female

DRUGS (9)
  1. MEGESTROL [Concomitant]
     Active Substance: MEGESTROL
  2. VALSARTAN. [Concomitant]
     Active Substance: VALSARTAN
  3. OPSUMIT [Suspect]
     Active Substance: MACITENTAN
     Indication: PRODUCT USED FOR UNKNOWN INDICATION
     Dosage: 10 MG, QD
     Route: 048
  4. AMLODIPINE [Concomitant]
     Active Substance: AMLODIPINE BESYLATE
  5. ALBUTEROL. [Concomitant]
     Active Substance: ALBUTEROL
  6. TRAZODONE [Concomitant]
     Active Substance: TRAZODONE HYDROCHLORIDE
  7. TUDORZA PRESSAIR [Concomitant]
     Active Substance: ACLIDINIUM BROMIDE
  8. NICODERM CQ [Concomitant]
     Active Substance: NICOTINE
  9. OMEPRAZOLE. [Concomitant]
     Active Substance: OMEPRAZOLE

REACTIONS (5)
  - Reaction to food colouring [Unknown]
  - Dyspnoea [Unknown]
  - Urticaria [Recovered/Resolved]
  - Drug dose omission [Unknown]
  - Therapy non-responder [Unknown]
